FAERS Safety Report 6234102-4 (Version None)
Quarter: 2009Q2

REPORT INFORMATION
  Report Type: 
  Country: None (occurrence: None)
  Receive Date: 20090612
  Receipt Date: 20090608
  Transmission Date: 20091009
  Serious: Yes (Hospitalization)
  Sender: FDA-Public Use
  Company Number: 2009SP012462

PATIENT
  Age: 72 Year
  Sex: Male
  Weight: 73 kg

DRUGS (9)
  1. TEMODAL [Suspect]
     Indication: LYMPHOMA
     Dosage: 275 MG;QD;PO ; 275 MG;QD;PO
     Route: 048
     Dates: end: 20090504
  2. TEMODAL [Suspect]
     Indication: LYMPHOMA
     Dosage: 275 MG;QD;PO ; 275 MG;QD;PO
     Route: 048
     Dates: start: 20090226
  3. METHOTREXATE [Suspect]
     Indication: LYMPHOMA
     Dosage: 6/4 GM;QD;IV ; 6.4 GM;QD;IV
     Route: 042
     Dates: end: 20090430
  4. METHOTREXATE [Suspect]
     Indication: LYMPHOMA
     Dosage: 6/4 GM;QD;IV ; 6.4 GM;QD;IV
     Route: 042
     Dates: start: 20090226
  5. MEDROL [Suspect]
     Indication: DRUG USE FOR UNKNOWN INDICATION
     Dosage: 100 MG;QD;PO
     Route: 048
     Dates: start: 20090317
  6. ATARAX [Concomitant]
  7. INIPOMP [Concomitant]
  8. POLYETHYLENE GLYCOL 3350 AND ELECTOLYTES [Concomitant]
  9. DIFFU K [Concomitant]

REACTIONS (13)
  - BRAIN OEDEMA [None]
  - CONFUSIONAL STATE [None]
  - CYANOSIS [None]
  - DISORIENTATION [None]
  - GASTRIC ULCER [None]
  - HEART RATE INCREASED [None]
  - LIVEDO RETICULARIS [None]
  - LUNG DISORDER [None]
  - PANCYTOPENIA [None]
  - PULMONARY OEDEMA [None]
  - RESPIRATORY DISTRESS [None]
  - SEPTIC SHOCK [None]
  - STAPHYLOCOCCAL INFECTION [None]
